FAERS Safety Report 9892471 (Version 1)
Quarter: 2014Q1

REPORT INFORMATION
  Report Type: Spontaneous
  Country: PT (occurrence: PT)
  Receive Date: 20140212
  Receipt Date: 20140212
  Transmission Date: 20141002
  Serious: Yes (Other)
  Sender: FDA-Public Use
  Company Number: CHPA2014PT002398

PATIENT
  Sex: Female

DRUGS (1)
  1. OTRIVINA [Suspect]
     Dosage: UNK, UNK

REACTIONS (1)
  - Drug dependence [Unknown]
